FAERS Safety Report 20589384 (Version 1)
Quarter: 2022Q1

REPORT INFORMATION
  Report Type: Spontaneous
  Country: ZA (occurrence: ZA)
  Receive Date: 20220314
  Receipt Date: 20220314
  Transmission Date: 20220423
  Serious: Yes (Other)
  Sender: FDA-Public Use
  Company Number: ZA-NOVARTISPH-NVSC2022ZA058436

PATIENT
  Sex: Female

DRUGS (1)
  1. FINGOLIMOD HYDROCHLORIDE [Suspect]
     Active Substance: FINGOLIMOD HYDROCHLORIDE
     Indication: Product used for unknown indication
     Dosage: UNK (MONDAY TO FRIDAY AND THEN SKIP DOSAGES OVER THE WEEKEND)
     Route: 065

REACTIONS (4)
  - Optic neuritis [Unknown]
  - Multiple sclerosis relapse [Unknown]
  - Lymphopenia [Not Recovered/Not Resolved]
  - Product dose omission issue [Unknown]
